FAERS Safety Report 6138119-X (Version None)
Quarter: 2009Q1

REPORT INFORMATION
  Report Type: 
  Country: None (occurrence: None)
  Receive Date: 20090331
  Receipt Date: 20090130
  Transmission Date: 20090719
  Serious: Yes (Death)
  Sender: FDA-Public Use
  Company Number: US-TYCO HEALTHCARE/MALLINCKRODT-T200900500

PATIENT

DRUGS (6)
  1. OXYCODONE HCL [Suspect]
  2. AMITRIPTYLINE [Suspect]
  3. PREGABALIN [Suspect]
  4. OPIOIDS [Suspect]
  5. CYCLOBENZAPRINE [Suspect]
  6. PAROXETINE HCL [Suspect]

REACTIONS (1)
  - CARDIO-RESPIRATORY ARREST [None]
